FAERS Safety Report 6474239-8 (Version None)
Quarter: 2009Q4

REPORT INFORMATION
  Report Type: 
  Country: None (occurrence: None)
  Receive Date: 20091204
  Receipt Date: 20091125
  Transmission Date: 20100525
  Serious: No
  Sender: FDA-Public Use
  Company Number: PHHY2009FR50270

PATIENT
  Sex: Female
  Weight: 60 kg

DRUGS (3)
  1. RASILEZ [Suspect]
     Indication: HYPERTENSION
     Dosage: 150 MG, UNK
     Route: 065
     Dates: start: 20091002, end: 20091004
  2. LOXEN [Concomitant]
     Dosage: 100 MG, QD
  3. DETENSIEL [Concomitant]
     Dosage: 5 MG, QD

REACTIONS (3)
  - CHEST PAIN [None]
  - ELECTROCARDIOGRAM ABNORMAL [None]
  - TROPONIN INCREASED [None]
